FAERS Safety Report 21476691 (Version 9)
Quarter: 2023Q4

REPORT INFORMATION
  Report Type: Report from Study
  Country: US (occurrence: US)
  Receive Date: 20221019
  Receipt Date: 20231122
  Transmission Date: 20240110
  Serious: Yes (Other)
  Sender: FDA-Public Use
  Company Number: US-ABBVIE-22K-163-4494150-00

PATIENT
  Sex: Female
  Weight: 72.574 kg

DRUGS (11)
  1. HUMIRA [Suspect]
     Active Substance: ADALIMUMAB
     Indication: Rheumatoid arthritis
     Route: 058
  2. HUMIRA [Suspect]
     Active Substance: ADALIMUMAB
     Dosage: CITRATE FREE FORM STRENGTH WAS 40 MILLIGRAMS
     Route: 058
  3. HUMIRA [Suspect]
     Active Substance: ADALIMUMAB
     Dosage: CITRATE FREE FORM STRENGTH WAS 40 MILLIGRAMS
     Route: 058
     Dates: start: 2019
  4. HUMIRA [Suspect]
     Active Substance: ADALIMUMAB
     Dosage: CITRATE FREE FORM STRENGTH WAS 40 MILLIGRAMS
     Route: 058
     Dates: start: 20210409
  5. METFORMIN [Concomitant]
     Active Substance: METFORMIN HYDROCHLORIDE
     Indication: Diabetes mellitus
  6. TIMOLOL [Concomitant]
     Active Substance: TIMOLOL
     Indication: Ocular discomfort
  7. MODERNA COVID-19 VACCINE [Concomitant]
     Active Substance: ELASOMERAN
     Indication: COVID-19 immunisation
     Route: 030
  8. MELOXICAM [Concomitant]
     Active Substance: MELOXICAM
     Indication: Arthritis
  9. METOPROLOL [Concomitant]
     Active Substance: METOPROLOL
     Indication: Hypertension
  10. ATORVASTATIN [Concomitant]
     Active Substance: ATORVASTATIN
     Indication: Blood cholesterol
  11. RISEDRONATE SODIUM [Concomitant]
     Active Substance: RISEDRONATE SODIUM
     Indication: Osteopenia

REACTIONS (23)
  - Meniscus injury [Recovering/Resolving]
  - Arthritis [Unknown]
  - Therapeutic product effect incomplete [Unknown]
  - Paraesthesia [Unknown]
  - Patella fracture [Recovering/Resolving]
  - Burning sensation [Recovering/Resolving]
  - Musculoskeletal stiffness [Unknown]
  - Fall [Recovering/Resolving]
  - Asthenia [Recovering/Resolving]
  - Pain [Not Recovered/Not Resolved]
  - Gait disturbance [Recovering/Resolving]
  - Cystoid macular oedema [Recovering/Resolving]
  - Swelling [Unknown]
  - Injury [Recovered/Resolved]
  - Hypoaesthesia [Not Recovered/Not Resolved]
  - Fall [Recovering/Resolving]
  - Impaired healing [Recovering/Resolving]
  - Acne [Recovering/Resolving]
  - Skin exfoliation [Recovering/Resolving]
  - Injury [Recovering/Resolving]
  - Trigger finger [Unknown]
  - Knee operation [Recovering/Resolving]
  - Burning sensation [Recovering/Resolving]

NARRATIVE: CASE EVENT DATE: 20210101
